FAERS Safety Report 20906360 (Version 9)
Quarter: 2024Q4

REPORT INFORMATION
  Report Type: Spontaneous
  Country: US (occurrence: US)
  Receive Date: 20220602
  Receipt Date: 20241219
  Transmission Date: 20250115
  Serious: No
  Sender: PFIZER
  Company Number: US-PFIZER INC-202200786068

PATIENT
  Age: 67 Year
  Sex: Female

DRUGS (3)
  1. IBRANCE [Suspect]
     Active Substance: PALBOCICLIB
     Indication: Breast cancer female
     Dosage: 125 MG
  2. IBRANCE [Suspect]
     Active Substance: PALBOCICLIB
     Dosage: 100 MG, CYCLIC (TAKE 1X 100 MG TABLET DAILY FOR THREE WEEKS, FOLLOWED BY ONE WEEK REST)
     Route: 048
  3. IBRANCE [Suspect]
     Active Substance: PALBOCICLIB
     Dosage: 100 MG, CYCLIC (TAKE ONE TAB QD FOR THREE WEEKS, FOLLOWED BY 10 DAYS REST)
     Route: 048

REACTIONS (3)
  - Fall [Unknown]
  - Full blood count decreased [Not Recovered/Not Resolved]
  - Off label use [Unknown]
